FAERS Safety Report 7765984-2 (Version None)
Quarter: 2011Q3

REPORT INFORMATION
  Report Type: 
  Country: None (occurrence: None)
  Receive Date: 20110921
  Receipt Date: 20110908
  Transmission Date: 20111222
  Serious: Yes (Other)
  Sender: FDA-Public Use
  Company Number: IT-ELI_LILLY_AND_COMPANY-IT201109002170

PATIENT
  Sex: Female

DRUGS (2)
  1. BYETTA [Suspect]
     Indication: TYPE 2 DIABETES MELLITUS
     Dosage: 5 UG, BID
     Route: 058
     Dates: start: 20110714, end: 20110810
  2. METFORMIN                          /00082701/ [Concomitant]
     Indication: TYPE 2 DIABETES MELLITUS
     Dosage: 2000 MG, UNK
     Route: 048
     Dates: end: 20110831

REACTIONS (6)
  - ERYTHEMA [None]
  - PYODERMA [None]
  - URTICARIA [None]
  - NOCTURNAL DYSPNOEA [None]
  - LIP OEDEMA [None]
  - OEDEMA PERIPHERAL [None]
